FAERS Safety Report 15112547 (Version 1)
Quarter: 2018Q3

REPORT INFORMATION
  Report Type: Spontaneous
  Country: CA (occurrence: CA)
  Receive Date: 20180705
  Receipt Date: 20180705
  Transmission Date: 20181010
  Serious: Yes (Other)
  Sender: FDA-Public Use
  Company Number: CA-BAUSCH-BL-2018-018085

PATIENT
  Age: 44 Year
  Sex: Female
  Weight: 65.83 kg

DRUGS (4)
  1. WELLBUTRIN XL [Suspect]
     Active Substance: BUPROPION HYDROCHLORIDE
     Indication: DEPRESSIVE SYMPTOM
     Dosage: EXTENDED RELEASE TABLET
     Route: 048
  2. CALCIUM AND MAGNESIUM [Concomitant]
     Active Substance: CALCIUM\MAGNESIUM
     Indication: PRODUCT USED FOR UNKNOWN INDICATION
  3. IMOVANE [Concomitant]
     Active Substance: ZOPICLONE
     Indication: PRODUCT USED FOR UNKNOWN INDICATION
  4. NASONEX [Concomitant]
     Active Substance: MOMETASONE FUROATE
     Indication: PRODUCT USED FOR UNKNOWN INDICATION
     Dosage: SPRAY, METERED DOSE
     Route: 048

REACTIONS (18)
  - Decreased appetite [Recovering/Resolving]
  - Depression [Recovering/Resolving]
  - Impatience [Recovering/Resolving]
  - Amnesia [Recovering/Resolving]
  - Disturbance in attention [Recovering/Resolving]
  - Agitation [Recovering/Resolving]
  - Insomnia [Recovering/Resolving]
  - Headache [Recovering/Resolving]
  - Hyperhidrosis [Recovering/Resolving]
  - Aggression [Recovering/Resolving]
  - Muscle twitching [Recovering/Resolving]
  - Fatigue [Recovering/Resolving]
  - Nausea [Recovering/Resolving]
  - Depressed mood [Recovering/Resolving]
  - Dizziness [Recovering/Resolving]
  - Glassy eyes [Recovering/Resolving]
  - Mania [Recovering/Resolving]
  - Tremor [Recovering/Resolving]
